FAERS Safety Report 18066473 (Version 1)
Quarter: 2020Q3

REPORT INFORMATION
  Report Type: Spontaneous
  Country: US (occurrence: US)
  Receive Date: 20200724
  Receipt Date: 20200724
  Transmission Date: 20201103
  Serious: Yes (Hospitalization)
  Sender: FDA-Public Use
  Company Number: US-VERTEX PHARMACEUTICALS-2020-001416

PATIENT
  Age: 29 Year
  Sex: Female
  Weight: 61 kg

DRUGS (23)
  1. RELPAX [Concomitant]
     Active Substance: ELETRIPTAN HYDROBROMIDE
     Indication: MIGRAINE
     Dosage: 20 MG
     Route: 048
     Dates: end: 20191220
  2. ELETRIPTAN. [Concomitant]
     Active Substance: ELETRIPTAN
  3. CHOLECALCIFEROL [Concomitant]
     Active Substance: CHOLECALCIFEROL
     Dosage: UNK, QD
     Route: 048
     Dates: start: 20171207
  4. CAYSTON [Concomitant]
     Active Substance: AZTREONAM
     Dosage: 75 MG, TID
     Route: 055
     Dates: start: 20170427
  5. ZENPEP [Concomitant]
     Active Substance: PANCRELIPASE AMYLASE\PANCRELIPASE LIPASE\PANCRELIPASE PROTEASE
     Indication: PANCREATIC FAILURE
     Dosage: 2 CAPS WITH MEALS AND SNACKS
  6. FIORICET [Concomitant]
     Active Substance: ACETAMINOPHEN\BUTALBITAL\CAFFEINE
     Indication: MIGRAINE
     Dosage: 325/25MG Q4H
     Route: 048
     Dates: start: 20200214
  7. PROCHLORPERAZINE. [Concomitant]
     Active Substance: PROCHLORPERAZINE
  8. PROGESTERONE. [Concomitant]
     Active Substance: PROGESTERONE
  9. VENTOLIN HFA [Concomitant]
     Active Substance: ALBUTEROL SULFATE
  10. TRIKAFTA [Suspect]
     Active Substance: ELEXACAFTOR\IVACAFTOR\TEZACAFTOR
     Indication: CYSTIC FIBROSIS
     Dosage: 2 TABLETS (100MG ELEXACAFTOR/ 50MG TEZACAFTOR/ 75MG IVACAFTOR) AM, 1 TABLET (150MG IVACAFTOR) PM
     Route: 048
     Dates: start: 20191115
  11. AZITHROMYCIN ANHYDROUS. [Concomitant]
     Active Substance: AZITHROMYCIN ANHYDROUS
     Dosage: 500 MG, MONDAY, WEDNESDAY AND FRIDAY
     Route: 048
     Dates: start: 20131107, end: 20200225
  12. TOBRAMYCIN. [Concomitant]
     Active Substance: TOBRAMYCIN
     Dosage: 300 MG, BID
     Route: 055
     Dates: start: 20191128, end: 20191220
  13. PULMOZYME [Concomitant]
     Active Substance: DORNASE ALFA
     Dosage: 2.5 MG, BID
     Route: 055
     Dates: start: 20001128
  14. SODIUM CHLORIDE. [Concomitant]
     Active Substance: SODIUM CHLORIDE
     Dosage: 4ML, BID
     Route: 055
     Dates: start: 20131003
  15. ALBUTEROL [SALBUTAMOL] [Concomitant]
     Active Substance: ALBUTEROL
     Dosage: 2.5 MG, Q8H PRN
     Dates: start: 20030523
  16. FLOVENT HFA [Concomitant]
     Active Substance: FLUTICASONE PROPIONATE
  17. FLUTICASONE. [Concomitant]
     Active Substance: FLUTICASONE
  18. OMEPRAZOLE. [Concomitant]
     Active Substance: OMEPRAZOLE
  19. FLONASE [Concomitant]
     Active Substance: FLUTICASONE PROPIONATE
     Indication: SINUSITIS
     Dosage: 500 MICROGRAM
  20. METRONIDAZOLE. [Concomitant]
     Active Substance: METRONIDAZOLE
  21. OSELTAMIVIR [Concomitant]
     Active Substance: OSELTAMIVIR
  22. VITAMIN E [Concomitant]
     Active Substance: .ALPHA.-TOCOPHEROL
     Dosage: 400 IU, QD
     Route: 048
     Dates: start: 20200214
  23. URSODIOL. [Concomitant]
     Active Substance: URSODIOL
     Indication: CYSTIC FIBROSIS HEPATIC DISEASE
     Dosage: 300 MG, QD
     Route: 048
     Dates: start: 20061118

REACTIONS (2)
  - Premature labour [Not Recovered/Not Resolved]
  - Exposure during pregnancy [Unknown]

NARRATIVE: CASE EVENT DATE: 20191220
